FAERS Safety Report 20407665 (Version 1)
Quarter: 2022Q1

REPORT INFORMATION
  Report Type: Report from Study
  Country: CA (occurrence: CA)
  Receive Date: 20220131
  Receipt Date: 20220131
  Transmission Date: 20220424
  Serious: Yes (Hospitalization, Other)
  Sender: FDA-Public Use
  Company Number: CA-ABBVIE-22K-028-4256720-00

PATIENT
  Age: 63 Year
  Sex: Female

DRUGS (5)
  1. RINVOQ [Suspect]
     Active Substance: UPADACITINIB
     Indication: Product used for unknown indication
     Route: 048
     Dates: end: 20211203
  2. RINVOQ [Suspect]
     Active Substance: UPADACITINIB
     Route: 048
     Dates: start: 20211208, end: 20220115
  3. COVID-19 VACCINE [Concomitant]
     Indication: COVID-19 prophylaxis
     Dates: start: 2021, end: 2021
  4. COVID-19 VACCINE [Concomitant]
     Dates: start: 2021, end: 2021
  5. COVID-19 VACCINE [Concomitant]
     Dates: start: 202112, end: 202112

REACTIONS (2)
  - Epistaxis [Unknown]
  - Inappropriate schedule of product administration [Unknown]

NARRATIVE: CASE EVENT DATE: 20211201
